FAERS Safety Report 9390958 (Version 1)
Quarter: 2013Q3

REPORT INFORMATION
  Report Type: Spontaneous
  Country: US (occurrence: None)
  Receive Date: 20130705
  Receipt Date: 20130705
  Transmission Date: 20140515
  Serious: Yes (Other)
  Sender: FDA-Public Use
  Company Number: None

PATIENT
  Age: 62 Year
  Sex: Male
  Weight: 104.33 kg

DRUGS (14)
  1. JANUMET [Suspect]
     Indication: TYPE 2 DIABETES MELLITUS
     Dosage: STRENGTH:  50 MG / 1,000 MG?QUANTITY:  60?FREQUENCY:  1 TABLET TWICE A DAY?HOW:  BY MOUTH?
     Route: 048
     Dates: start: 20130303, end: 20130415
  2. CPAP MACHINE [Concomitant]
  3. LISINOPRIL [Concomitant]
  4. BISPROLOL [Concomitant]
  5. PIOGLITAZONE [Concomitant]
  6. SIMVASTATIN [Concomitant]
  7. GLIMEPIRIDE [Concomitant]
  8. LYRICA [Concomitant]
  9. ASPIRIN [Concomitant]
  10. FISH OIL [Concomitant]
  11. MAGNESIUM [Concomitant]
  12. MULTI-VITAMIN [Concomitant]
  13. CINNAMON [Concomitant]
  14. VITAMIN C + D [Concomitant]

REACTIONS (1)
  - Abdominal pain upper [None]
